FAERS Safety Report 13688797 (Version 1)
Quarter: 2017Q2

REPORT INFORMATION
  Report Type: Spontaneous
  Country: US (occurrence: US)
  Receive Date: 20170623
  Receipt Date: 20170623
  Transmission Date: 20170830
  Serious: Yes (Disabling)
  Sender: FDA-Public Use
  Company Number: None

PATIENT
  Age: 44 Year
  Sex: Male
  Weight: 157.5 kg

DRUGS (10)
  1. LORAZEPAM. [Suspect]
     Active Substance: LORAZEPAM
     Indication: PANIC ATTACK
     Dosage: ?          OTHER FREQUENCY:PRN, THEN DAILY;?
     Route: 048
     Dates: start: 20130301
  2. LORAZEPAM. [Suspect]
     Active Substance: LORAZEPAM
     Indication: ANXIETY
     Dosage: ?          OTHER FREQUENCY:PRN, THEN DAILY;?
     Route: 048
     Dates: start: 20130301
  3. GABAPENTIN. [Concomitant]
     Active Substance: GABAPENTIN
  4. FAMOTIDINE. [Concomitant]
     Active Substance: FAMOTIDINE
  5. METFORMIN [Concomitant]
     Active Substance: METFORMIN HYDROCHLORIDE
  6. BUSPAR [Concomitant]
     Active Substance: BUSPIRONE HYDROCHLORIDE
  7. TRINTELLIX [Concomitant]
     Active Substance: VORTIOXETINE HYDROBROMIDE
  8. METOPROLOL. [Concomitant]
     Active Substance: METOPROLOL
  9. GEMFIBROZIL. [Concomitant]
     Active Substance: GEMFIBROZIL
  10. LISINOPRIL. [Concomitant]
     Active Substance: LISINOPRIL

REACTIONS (13)
  - Memory impairment [None]
  - Insomnia [None]
  - Panic disorder [None]
  - Fatigue [None]
  - Cognitive disorder [None]
  - Tremor [None]
  - Agitation [None]
  - Agoraphobia [None]
  - Chills [None]
  - Stress [None]
  - Anxiety [None]
  - Depression [None]
  - Impaired driving ability [None]

NARRATIVE: CASE EVENT DATE: 20130303
